FAERS Safety Report 13111596 (Version 1)
Quarter: 2017Q1

REPORT INFORMATION
  Report Type: Spontaneous
  Country: US (occurrence: US)
  Receive Date: 20170112
  Receipt Date: 20170112
  Transmission Date: 20170428
  Serious: No
  Sender: FDA-Public Use
  Company Number: US-AMGEN-USASP2017002354

PATIENT
  Age: 51 Year
  Sex: Male

DRUGS (10)
  1. ASACOL [Concomitant]
     Active Substance: MESALAMINE
  2. CEFDINIR. [Concomitant]
     Active Substance: CEFDINIR
  3. CIALIS [Concomitant]
     Active Substance: TADALAFIL
  4. TOPICORT [Concomitant]
     Active Substance: DESOXIMETASONE
  5. ATORVASTATIN CALCIUM. [Concomitant]
     Active Substance: ATORVASTATIN CALCIUM
  6. HYDROXIZINE HCL [Concomitant]
  7. CORDRAN [Concomitant]
     Active Substance: FLURANDRENOLIDE
  8. HYDROCODONE/IBUPROFEN [Concomitant]
     Active Substance: HYDROCODONE\IBUPROFEN
  9. AMLODIPINE BESYLATE. [Concomitant]
     Active Substance: AMLODIPINE BESYLATE
  10. ENBREL [Suspect]
     Active Substance: ETANERCEPT
     Indication: PSORIASIS
     Dosage: 50 MG, QWK
     Route: 058

REACTIONS (2)
  - Skin exfoliation [Unknown]
  - Drug dose omission [Unknown]

NARRATIVE: CASE EVENT DATE: 2016
